FAERS Safety Report 17319625 (Version 1)
Quarter: 2020Q1

REPORT INFORMATION
  Report Type: Spontaneous
  Country: US (occurrence: US)
  Receive Date: 20200125
  Receipt Date: 20200125
  Transmission Date: 20200409
  Serious: No
  Sender: FDA-Public Use
  Company Number: US-009507513-2001USA007411

PATIENT
  Sex: Female

DRUGS (1)
  1. PRINIVIL [Suspect]
     Active Substance: LISINOPRIL
     Dosage: UNK
     Route: 048
     Dates: start: 2016

REACTIONS (2)
  - Product blister packaging issue [Unknown]
  - Renal disorder [Unknown]

NARRATIVE: CASE EVENT DATE: 2016
